FAERS Safety Report 13427168 (Version 4)
Quarter: 2017Q2

REPORT INFORMATION
  Report Type: Spontaneous
  Country: US (occurrence: US)
  Receive Date: 20170411
  Receipt Date: 20170620
  Transmission Date: 20170830
  Serious: Yes (Hospitalization)
  Sender: FDA-Public Use
  Company Number: US-UNITED THERAPEUTICS-UNT-2017-002631

PATIENT
  Age: 70 Year
  Sex: Female
  Weight: 74.83 kg

DRUGS (3)
  1. REMODULIN [Suspect]
     Active Substance: TREPROSTINIL
     Indication: PULMONARY ARTERIAL HYPERTENSION
     Dosage: 0.082 ?G/KG, CONTINUING
     Route: 041
     Dates: start: 20110314
  2. REMODULIN [Suspect]
     Active Substance: TREPROSTINIL
     Dosage: UNK
     Route: 041
     Dates: start: 20110404
  3. REVATIO [Concomitant]
     Active Substance: SILDENAFIL CITRATE
     Indication: PRODUCT USED FOR UNKNOWN INDICATION

REACTIONS (2)
  - Small intestinal obstruction [Recovering/Resolving]
  - Post procedural complication [Recovering/Resolving]

NARRATIVE: CASE EVENT DATE: 20170324
